FAERS Safety Report 20901448 (Version 5)
Quarter: 2022Q4

REPORT INFORMATION
  Report Type: Report from Study
  Country: US (occurrence: US)
  Receive Date: 20220601
  Receipt Date: 20221206
  Transmission Date: 20230112
  Serious: Yes (Other)
  Sender: FDA-Public Use
  Company Number: US-BRISTOL-MYERS SQUIBB COMPANY-2022-023020

PATIENT
  Age: 77 Year
  Sex: Female
  Weight: 80.74 kg

DRUGS (18)
  1. POMALYST [Suspect]
     Active Substance: POMALIDOMIDE
     Indication: Plasma cell myeloma
     Dosage: 21 OUT OF 28 DAYS
     Route: 048
     Dates: start: 2018
  2. POMALYST [Suspect]
     Active Substance: POMALIDOMIDE
     Dosage: 21 OUT OF 28 DAYS?EXPIRY DATE: 30-NOV-2025
     Route: 048
     Dates: start: 2019
  3. POMALYST [Suspect]
     Active Substance: POMALIDOMIDE
     Route: 048
  4. ATENOLOL [Concomitant]
     Active Substance: ATENOLOL
     Indication: Product used for unknown indication
     Route: 065
  5. NOUREX PROFESSIONAL VITAMIN D [Concomitant]
     Indication: Product used for unknown indication
     Route: 065
  6. MENADIONE [Concomitant]
     Active Substance: MENADIONE
     Indication: Product used for unknown indication
     Route: 065
  7. ACETYLCYSTEINE [Concomitant]
     Active Substance: ACETYLCYSTEINE
     Indication: Product used for unknown indication
     Route: 065
  8. CALCIUM [Concomitant]
     Active Substance: CALCIUM
     Indication: Product used for unknown indication
     Dosage: OYSTER SHELL CALCIUM 500
  9. POTASSIUM GLUCONATE [Concomitant]
     Active Substance: POTASSIUM GLUCONATE
     Indication: Product used for unknown indication
     Dosage: POTASSIUM GLUCONATE 595(99)
  10. QUERCETIN DIHYDRATE [Concomitant]
     Active Substance: QUERCETIN DIHYDRATE
     Indication: Product used for unknown indication
     Dosage: QUERCETIN DIHYDRATE 100 %
  11. QUININE SULFATE [Concomitant]
     Active Substance: QUININE SULFATE
     Indication: Product used for unknown indication
  12. SELENIUM [SELENIUM AMINO ACID CHELATE] [Concomitant]
     Indication: Product used for unknown indication
  13. VITAMIN B COMPLEX [Concomitant]
     Active Substance: CYANOCOBALAMIN\DEXPANTHENOL\NIACINAMIDE\PYRIDOXINE HYDROCHLORIDE\RIBOFLAVIN 5^-PHOSPHATE SODIUM\THIA
     Indication: Product used for unknown indication
  14. VITAMIN C [Concomitant]
     Active Substance: ASCORBIC ACID
     Indication: Product used for unknown indication
  15. VITAMIN D3 [Concomitant]
     Active Substance: CHOLECALCIFEROL
     Indication: Product used for unknown indication
  16. COD LIVER OIL [Concomitant]
     Active Substance: COD LIVER OIL
     Indication: Product used for unknown indication
  17. COLLAGEN [Concomitant]
     Active Substance: COLLAGEN
     Indication: Product used for unknown indication
  18. VITAMINS [Concomitant]
     Active Substance: VITAMINS
     Indication: Product used for unknown indication

REACTIONS (18)
  - Alopecia [Unknown]
  - Fatigue [Unknown]
  - Mass [Unknown]
  - Neuropathy peripheral [Unknown]
  - Tremor [Unknown]
  - Rash [Unknown]
  - Blepharospasm [Unknown]
  - Muscle spasms [Unknown]
  - Weight increased [Unknown]
  - Dry skin [Unknown]
  - Dysphonia [Unknown]
  - Abdominal distension [Unknown]
  - Skin exfoliation [Unknown]
  - Protein total decreased [Unknown]
  - Muscle twitching [Unknown]
  - Bell^s palsy [Recovered/Resolved]
  - Condition aggravated [Unknown]
  - Rhinorrhoea [Unknown]

NARRATIVE: CASE EVENT DATE: 20210101
